FAERS Safety Report 21730879 (Version 1)
Quarter: 2022Q4

REPORT INFORMATION
  Report Type: Spontaneous
  Country: JP (occurrence: JP)
  Receive Date: 20221215
  Receipt Date: 20221215
  Transmission Date: 20230113
  Serious: Yes (Hospitalization)
  Sender: FDA-Public Use
  Company Number: JP-SUN PHARMACEUTICAL INDUSTRIES LTD-2022RR-368517

PATIENT
  Age: 3 Month
  Sex: Female
  Weight: 8.5 kg

DRUGS (3)
  1. FLECAINIDE [Suspect]
     Active Substance: FLECAINIDE
     Indication: Tachycardia
     Dosage: 200 MILLIGRAM/SQ. METER, DAILY
     Route: 048
  2. SOTALOL [Suspect]
     Active Substance: SOTALOL
     Indication: Tachycardia
     Dosage: 6 MILLIGRAM/KILOGRAM, DAILY
     Route: 048
  3. PROPRANOLOL [Suspect]
     Active Substance: PROPRANOLOL HYDROCHLORIDE
     Indication: Tachycardia
     Dosage: 4 MILLIGRAM/KILOGRAM, DAILY
     Route: 048

REACTIONS (1)
  - Drug ineffective [Unknown]
